FAERS Safety Report 10049681 (Version 2)
Quarter: 2014Q2

REPORT INFORMATION
  Report Type: Report from Study
  Country: US (occurrence: US)
  Receive Date: 20140401
  Receipt Date: 20140401
  Transmission Date: 20141212
  Serious: Yes (Other)
  Sender: FDA-Public Use
  Company Number: PHEH2014US004307

PATIENT
  Age: 78 Year
  Sex: Female
  Weight: 70.8 kg

DRUGS (8)
  1. TOBI [Suspect]
     Indication: CYSTIC FIBROSIS
     Dosage: 300 MG/5ML, BID
     Route: 055
     Dates: start: 201202
  2. TOBI [Suspect]
     Indication: PSEUDOMONAS TEST POSITIVE
     Dosage: 380 MG, BID
     Route: 055
     Dates: start: 20120412, end: 20131018
  3. TOBI [Suspect]
     Dosage: 300 MG/5ML, BID
     Route: 055
     Dates: end: 201311
  4. ALBUTEROL [Concomitant]
     Dosage: 2.5 MG, 2-3 TIMES A DAY
     Route: 055
  5. ZITROMAX [Concomitant]
     Dosage: 500 MG, MONDAY, WEDNESDAY, FRIDAY
     Route: 048
  6. PULMOZYME [Concomitant]
     Dosage: 2.5 MG, DAILY
     Route: 055
  7. HYPERSTAT [Concomitant]
     Dosage: UNK UKN, BID
     Route: 055
  8. DAPIPRAZOLE [Concomitant]
     Dosage: 20 MG, DAILY

REACTIONS (5)
  - Panic disorder [Recovering/Resolving]
  - Feeling abnormal [Recovering/Resolving]
  - Throat tightness [Recovering/Resolving]
  - Dyspnoea [Recovering/Resolving]
  - Choking [Unknown]
